FAERS Safety Report 24302347 (Version 1)
Quarter: 2024Q3

REPORT INFORMATION
  Report Type: Spontaneous
  Country: DE (occurrence: DE)
  Receive Date: 20240910
  Receipt Date: 20240910
  Transmission Date: 20241017
  Serious: Yes (Life-Threatening, Hospitalization)
  Sender: EPIC PHARM
  Company Number: DE-EPICPHARMA-DE-2024EPCLIT01084

PATIENT
  Age: 16 Year
  Sex: Male

DRUGS (1)
  1. AMIODARONE HYDROCHLORIDE [Suspect]
     Active Substance: AMIODARONE HYDROCHLORIDE
     Indication: Ventricular tachycardia
     Route: 065

REACTIONS (2)
  - Bradycardia [Recovered/Resolved]
  - Drug ineffective [Unknown]
